FAERS Safety Report 20992543 (Version 6)
Quarter: 2022Q4

REPORT INFORMATION
  Report Type: Spontaneous
  Country: US (occurrence: US)
  Receive Date: 20220622
  Receipt Date: 20221111
  Transmission Date: 20230112
  Serious: Yes (Other)
  Sender: FDA-Public Use
  Company Number: US-PFIZER INC-PV202200007117

PATIENT
  Age: 71 Year
  Sex: Female

DRUGS (1)
  1. IBRANCE [Suspect]
     Active Substance: PALBOCICLIB
     Dosage: 125 MG
     Dates: start: 20220615, end: 20220723

REACTIONS (9)
  - Pneumonia [Unknown]
  - Anaemia [Unknown]
  - Blood creatinine increased [Unknown]
  - Troponin increased [Unknown]
  - Nausea [Unknown]
  - Pyrexia [Unknown]
  - Heart rate increased [Unknown]
  - Rash [Unknown]
  - Feeling abnormal [Unknown]

NARRATIVE: CASE EVENT DATE: 20220601
